FAERS Safety Report 6274063-5 (Version None)
Quarter: 2009Q3

REPORT INFORMATION
  Report Type: 
  Country: None (occurrence: None)
  Receive Date: 20090716
  Receipt Date: 20090701
  Transmission Date: 20100115
  Serious: Yes (Hospitalization, Other)
  Sender: FDA-Public Use
  Company Number: 001216

PATIENT
  Age: 76 Year
  Sex: Male

DRUGS (1)
  1. NITROGLYCERIN [Suspect]
     Dosage: (TRANSDERMAL)
     Route: 062

REACTIONS (5)
  - HAEMOGLOBIN DECREASED [None]
  - MYOCARDIAL INFARCTION [None]
  - PULMONARY OEDEMA [None]
  - RIGHT VENTRICULAR FAILURE [None]
  - TACHYCARDIA [None]
